FAERS Safety Report 13547178 (Version 4)
Quarter: 2018Q1

REPORT INFORMATION
  Report Type: Report from Study
  Country: US (occurrence: US)
  Receive Date: 20170515
  Receipt Date: 20180110
  Transmission Date: 20180508
  Serious: Yes (Death, Hospitalization, Other)
  Sender: FDA-Public Use
  Company Number: US-ALEXION PHARMACEUTICALS INC.-A201705028

PATIENT
  Sex: Male

DRUGS (1)
  1. SOLIRIS [Suspect]
     Active Substance: ECULIZUMAB
     Indication: PRODUCT USED FOR UNKNOWN INDICATION
     Dosage: UNK
     Route: 042

REACTIONS (7)
  - Pneumonia [Unknown]
  - Death [Fatal]
  - Liver disorder [Unknown]
  - Cancer pain [Unknown]
  - Influenza [Unknown]
  - Terminal state [Unknown]
  - Metastasis [Unknown]

NARRATIVE: CASE EVENT DATE: 20171117
